FAERS Safety Report 5104997-6 (Version None)
Quarter: 2006Q3

REPORT INFORMATION
  Report Type: 
  Country: None (occurrence: None)
  Receive Date: 20060911
  Receipt Date: 20060901
  Transmission Date: 20061208
  Serious: Yes (Hospitalization)
  Sender: FDA-Public Use
  Company Number: 2006SS000065

PATIENT
  Age: 58 Year
  Sex: Female

DRUGS (7)
  1. MYOBLOC [Suspect]
     Indication: MUSCLE SPASTICITY
     Dosage: 5000 UNITS;X1;IM
     Route: 030
     Dates: start: 20060815, end: 20060815
  2. MYOBLOC [Suspect]
     Indication: OFF LABEL USE
     Dosage: 5000 UNITS;X1;IM
     Route: 030
     Dates: start: 20060815, end: 20060815
  3. BACLOFEN [Concomitant]
  4. FRAGMIN [Concomitant]
  5. PREVACID [Concomitant]
  6. KEPPRA [Concomitant]
  7. ZANTAC [Concomitant]

REACTIONS (9)
  - CEREBRAL DISORDER [None]
  - CEREBRAL ISCHAEMIA [None]
  - CEREBRAL VENTRICLE DILATATION [None]
  - GENERAL PHYSICAL HEALTH DETERIORATION [None]
  - GRAND MAL CONVULSION [None]
  - INJURY [None]
  - LOSS OF CONSCIOUSNESS [None]
  - OFF LABEL USE [None]
  - STATUS EPILEPTICUS [None]
